FAERS Safety Report 18156068 (Version 1)
Quarter: 2020Q3

REPORT INFORMATION
  Report Type: Spontaneous
  Country: ES (occurrence: ES)
  Receive Date: 20200817
  Receipt Date: 20200817
  Transmission Date: 20201103
  Serious: Yes (Other)
  Sender: FDA-Public Use
  Company Number: ES-ACCORD-195635

PATIENT
  Age: 79 Year
  Sex: Female

DRUGS (6)
  1. EMCONCOR COR [Concomitant]
     Active Substance: BISOPROLOL
     Dosage: STRENGTH: 2.5 MG, 28 TABLETS
     Route: 048
     Dates: end: 20200716
  2. CAPECITABINE. [Suspect]
     Active Substance: CAPECITABINE
     Indication: BREAST CANCER STAGE IV
     Dosage: 04/06/20 1ST CYCLE / 25/06/20 2ND CYCLE / 16/07/2020 3RD CYCLE
     Route: 048
     Dates: start: 20200604, end: 20200716
  3. TOUJEO [Concomitant]
     Active Substance: INSULIN GLARGINE
     Dosage: STRENGTH: 300 UNITS / ML SOLOSTAR, 3?PENS 1.5 ML
     Route: 058
  4. FUROSEMIDE. [Concomitant]
     Active Substance: FUROSEMIDE
     Route: 048
  5. JANUVIA [Concomitant]
     Active Substance: SITAGLIPTIN PHOSPHATE
     Dosage: STRENGTH: 100 MG, 28 TABLETS
     Route: 048
  6. ADIRO [Concomitant]
     Active Substance: ASPIRIN
     Dosage: STRENGTH: 100 MG, 30 TABLETS
     Route: 048

REACTIONS (1)
  - Tongue discolouration [Unknown]

NARRATIVE: CASE EVENT DATE: 20200630
